FAERS Safety Report 6240656-4 (Version None)
Quarter: 2009Q2

REPORT INFORMATION
  Report Type: 
  Country: None (occurrence: None)
  Receive Date: 20090623
  Receipt Date: 20081203
  Transmission Date: 20091009
  Serious: No
  Sender: FDA-Public Use
  Company Number: US-ASTRAZENECA-2008UW26911

PATIENT
  Sex: Female
  Weight: 56.7 kg

DRUGS (1)
  1. PULMICORT-100 [Suspect]
     Indication: ASTHMA
     Dosage: FLEXHALER 180 MCG ONE PUFF IN AM AND ONE PUFF IN PM
     Route: 055

REACTIONS (1)
  - SINUSITIS [None]
